FAERS Safety Report 5225312-3 (Version None)
Quarter: 2007Q1

REPORT INFORMATION
  Report Type: 
  Country: None (occurrence: None)
  Receive Date: 20070131
  Receipt Date: 20070123
  Transmission Date: 20070707
  Serious: Yes (Death)
  Sender: FDA-Public Use
  Company Number: US-AVENTIS-200612942US

PATIENT
  Age: 77 Year
  Sex: Male

DRUGS (8)
  1. LANTUS [Suspect]
     Dates: start: 20060221, end: 20060510
  2. ZANTAC [Concomitant]
     Dosage: DOSE: UNK
  3. NORVASC [Concomitant]
     Dosage: DOSE: UNK
  4. METOPROLOL TARTRATE [Concomitant]
     Dosage: DOSE: UNK
  5. HYDROXYZINE [Concomitant]
     Dosage: DOSE: UNK
  6. BENEDRYL [Concomitant]
     Dosage: DOSE: UNK
  7. RISPERDAL [Concomitant]
     Dosage: DOSE: UNK
  8. PROTONIX [Concomitant]
     Dosage: DOSE: UNK

REACTIONS (3)
  - CONDITION AGGRAVATED [None]
  - DIARRHOEA [None]
  - PANCREATIC CARCINOMA [None]
